FAERS Safety Report 5187873-2 (Version None)
Quarter: 2006Q4

REPORT INFORMATION
  Report Type: 
  Country: None (occurrence: None)
  Receive Date: 20061221
  Receipt Date: 20061102
  Transmission Date: 20070319
  Serious: No
  Sender: FDA-Public Use
  Company Number: 1-82116746

PATIENT
  Sex: Male

DRUGS (1)
  1. AVANDARYL [Suspect]

REACTIONS (1)
  - BLOOD GLUCOSE INCREASED [None]
